FAERS Safety Report 8605584-5 (Version None)
Quarter: 2012Q3

REPORT INFORMATION
  Report Type: 
  Country: None (occurrence: None)
  Receive Date: 20120820
  Receipt Date: 20120814
  Transmission Date: 20120928
  Serious: Yes (Hospitalization)
  Sender: FDA-Public Use
  Company Number: IT-SANOFI-AVENTIS-2012SA058419

PATIENT
  Age: 75 Year
  Sex: Female

DRUGS (4)
  1. OXALIPLATIN [Suspect]
     Indication: LARGE INTESTINE CARCINOMA
     Route: 041
     Dates: start: 20120725, end: 20120725
  2. CAPECITABINE [Concomitant]
  3. OXALIPLATIN [Suspect]
     Route: 041
     Dates: start: 20120814, end: 20120814
  4. POTASSIUM CHLORIDE [Concomitant]

REACTIONS (3)
  - ASTHENIA [None]
  - TONGUE DISORDER [None]
  - HYPERTENSION [None]
